FAERS Safety Report 14244541 (Version 2)
Quarter: 2017Q4

REPORT INFORMATION
  Report Type: Spontaneous
  Country: US (occurrence: DE)
  Receive Date: 20171201
  Receipt Date: 20171227
  Transmission Date: 20180321
  Serious: No
  Sender: FDA-Public Use
  Company Number: US-SUNOVION-2017SUN005127

PATIENT

DRUGS (4)
  1. INDACATEROL AND GLYCOPYRROLATE [Suspect]
     Active Substance: GLYCOPYRROLATE\INDACATEROL MALEATE
     Indication: CHRONIC OBSTRUCTIVE PULMONARY DISEASE
     Dosage: 1 DF, QD  (50/110UG)
     Route: 065
     Dates: start: 20171115, end: 20171118
  2. LERCANIDIPINE [Concomitant]
     Active Substance: LERCANIDIPINE
     Dosage: UNKNOWN
  3. RAMIPRIL. [Concomitant]
     Active Substance: RAMIPRIL
     Dosage: UNKNOWN
  4. TORASEMIDE [Concomitant]
     Active Substance: TORSEMIDE
     Dosage: UNKNOWN

REACTIONS (1)
  - Photopsia [Recovered/Resolved]

NARRATIVE: CASE EVENT DATE: 20171115
